FAERS Safety Report 14992283 (Version 1)
Quarter: 2018Q2

REPORT INFORMATION
  Report Type: Report from Study
  Country: None (occurrence: NL)
  Receive Date: 20180608
  Receipt Date: 20180608
  Transmission Date: 20180711
  Serious: Yes (Other)
  Sender: FDA-Public Use
  Company Number: NL-ABBVIE-16P-114-1636041-00

PATIENT
  Age: 69 Year
  Sex: Male
  Weight: 60.1 kg

DRUGS (6)
  1. DUODOPA [Suspect]
     Active Substance: CARBIDOPA\LEVODOPA
     Dosage: MD: 10.0, CD: 4.5, ED: 4.5, NIGHT DOSE: 2.0
     Route: 050
  2. DUODOPA [Suspect]
     Active Substance: CARBIDOPA\LEVODOPA
     Dosage: MORNING DOSE: 11, CONTINUOUS DOSE: 4.7, EXTRA DOSE: 2ML.
     Route: 050
  3. DUODOPA [Suspect]
     Active Substance: CARBIDOPA\LEVODOPA
     Indication: PARKINSON^S DISEASE
     Dosage: MD: 10, CD: 3.5, EXTRA DOSE: 2.0
     Route: 050
     Dates: start: 20160509
  4. DUODOPA [Suspect]
     Active Substance: CARBIDOPA\LEVODOPA
     Dosage: MD: 10, CD: 4, EXTRA DOSE: 2.0
     Route: 050
  5. DUODOPA [Suspect]
     Active Substance: CARBIDOPA\LEVODOPA
     Dosage: MD: 10, CD: 4.7, ED: 2
     Route: 050
  6. DUODOPA [Suspect]
     Active Substance: CARBIDOPA\LEVODOPA
     Dosage: MD: 10.0, CD: 4.2, EXTRA DOSE: 4.5, ND: 2.0
     Route: 050

REACTIONS (65)
  - Back disorder [Unknown]
  - Fibroma [Recovered/Resolved]
  - Pollakiuria [Not Recovered/Not Resolved]
  - Tremor [Not Recovered/Not Resolved]
  - Musculoskeletal stiffness [Not Recovered/Not Resolved]
  - Gait disturbance [Not Recovered/Not Resolved]
  - Dyschezia [Not Recovered/Not Resolved]
  - Fistula [Unknown]
  - Emotional disorder [Not Recovered/Not Resolved]
  - On and off phenomenon [Recovered/Resolved]
  - Insomnia [Recovered/Resolved]
  - Drug effect incomplete [Not Recovered/Not Resolved]
  - Disorientation [Not Recovered/Not Resolved]
  - Drug effect incomplete [Recovered/Resolved]
  - Stoma site haemorrhage [Recovered/Resolved]
  - Mood altered [Recovering/Resolving]
  - Abnormal faeces [Unknown]
  - Faeces hard [Not Recovered/Not Resolved]
  - Hallucination [Unknown]
  - Weight decreased [Unknown]
  - Posture abnormal [Not Recovered/Not Resolved]
  - Intervertebral disc protrusion [Unknown]
  - Paraesthesia [Not Recovered/Not Resolved]
  - Psychomotor hyperactivity [Unknown]
  - Fear [Recovering/Resolving]
  - Feeling abnormal [Not Recovered/Not Resolved]
  - Restlessness [Not Recovered/Not Resolved]
  - Contusion [Not Recovered/Not Resolved]
  - Constipation [Not Recovered/Not Resolved]
  - Dizziness [Not Recovered/Not Resolved]
  - Abdominal distension [Not Recovered/Not Resolved]
  - Fear [Not Recovered/Not Resolved]
  - Dyskinesia [Not Recovered/Not Resolved]
  - Hernia [Not Recovered/Not Resolved]
  - Fall [Not Recovered/Not Resolved]
  - Post procedural complication [Unknown]
  - Panic reaction [Recovering/Resolving]
  - Hot flush [Not Recovered/Not Resolved]
  - Parkinsonism [Recovered/Resolved]
  - Abnormal dreams [Not Recovered/Not Resolved]
  - Weight decreased [Recovered/Resolved]
  - Balance disorder [Not Recovered/Not Resolved]
  - Nasopharyngitis [Not Recovered/Not Resolved]
  - Stoma site odour [Not Recovered/Not Resolved]
  - Mobility decreased [Recovered/Resolved]
  - Back disorder [Not Recovered/Not Resolved]
  - Fatigue [Not Recovered/Not Resolved]
  - Bradykinesia [Not Recovered/Not Resolved]
  - Middle insomnia [Recovered/Resolved]
  - On and off phenomenon [Not Recovered/Not Resolved]
  - Cognitive disorder [Not Recovered/Not Resolved]
  - Memory impairment [Not Recovered/Not Resolved]
  - Gait disturbance [Recovered/Resolved]
  - General physical health deterioration [Not Recovered/Not Resolved]
  - Generalised erythema [Not Recovered/Not Resolved]
  - Road traffic accident [Not Recovered/Not Resolved]
  - Muscle spasms [Not Recovered/Not Resolved]
  - Weight increased [Recovered/Resolved]
  - Negative thoughts [Recovering/Resolving]
  - Hyperhidrosis [Not Recovered/Not Resolved]
  - Drug effect delayed [Not Recovered/Not Resolved]
  - Influenza [Unknown]
  - Lethargy [Not Recovered/Not Resolved]
  - Fall [Not Recovered/Not Resolved]
  - Dry throat [Not Recovered/Not Resolved]

NARRATIVE: CASE EVENT DATE: 20160515
